FAERS Safety Report 13273180 (Version 13)
Quarter: 2022Q2

REPORT INFORMATION
  Report Type: Spontaneous
  Country: CA (occurrence: CA)
  Receive Date: 20170227
  Receipt Date: 20220426
  Transmission Date: 20220721
  Serious: Yes (Hospitalization, Other)
  Sender: FDA-Public Use
  Company Number: CA-PFIZER INC-2016021110

PATIENT
  Age: 37 Year
  Sex: Male

DRUGS (31)
  1. SOMAVERT [Suspect]
     Active Substance: PEGVISOMANT
     Indication: Acromegaly
     Dosage: 20 MG, (THREE TIMES PER WEEK)
     Route: 058
     Dates: start: 20150616
  2. SOMAVERT [Suspect]
     Active Substance: PEGVISOMANT
     Dosage: 20 MG,  (5X/WEEK)
     Route: 058
  3. SOMAVERT [Suspect]
     Active Substance: PEGVISOMANT
     Dosage: 20 MG, DAILY
     Route: 058
     Dates: start: 20170731
  4. SOMAVERT [Suspect]
     Active Substance: PEGVISOMANT
     Dosage: ALTERNATING DOSE, DAILY
     Route: 058
     Dates: end: 201711
  5. SOMAVERT [Suspect]
     Active Substance: PEGVISOMANT
     Dosage: 20 MG, DAILY 5X/WEEKLY (ON WEEKDAYS)
     Route: 058
     Dates: start: 20171212, end: 2019
  6. SOMAVERT [Suspect]
     Active Substance: PEGVISOMANT
     Dosage: 20 MG, DAILY 5X/WEEKLY (ON WEEKDAYS)
     Route: 058
     Dates: start: 20190503, end: 2019
  7. SOMAVERT [Suspect]
     Active Substance: PEGVISOMANT
     Dosage: 20 MG, DAILY
     Route: 058
     Dates: start: 2020
  8. ASPIRIN [Concomitant]
     Active Substance: ASPIRIN
     Dosage: 81 MG, DAILY
     Route: 048
     Dates: start: 2014
  9. ASPIRIN [Concomitant]
     Active Substance: ASPIRIN
     Dosage: 81 MG, DAILY
     Route: 048
     Dates: start: 2016
  10. AMITRIPTYLINE [Concomitant]
     Active Substance: AMITRIPTYLINE
     Indication: Arthralgia
     Dosage: 10 MG
     Dates: start: 202006, end: 2020
  11. AMITRIPTYLINE [Concomitant]
     Active Substance: AMITRIPTYLINE
     Indication: Myalgia
     Dosage: 20 MG
     Dates: start: 2020
  12. CORTISOL [Concomitant]
     Active Substance: HYDROCORTISONE
     Dosage: UNK
  13. CORTEF [Concomitant]
     Active Substance: HYDROCORTISONE
     Dosage: 20 MG, DAILY(15 MG MORNING, 5 MG 15:00)
     Route: 048
  14. CORTEF [Concomitant]
     Active Substance: HYDROCORTISONE
     Dosage: 30 TO 35MG DAILY ON SOME DAYS
     Route: 048
     Dates: start: 201707
  15. CORTEF [Concomitant]
     Active Substance: HYDROCORTISONE
     Dosage: 20 MG, DAILY
     Route: 048
  16. DELATESTRYL [Concomitant]
     Active Substance: TESTOSTERONE ENANTHATE
     Dosage: 0.5 ML, WEEKLY(100 MG EVERY WEEK ON FRIDAYS)
     Route: 030
  17. DELATESTRYL [Concomitant]
     Active Substance: TESTOSTERONE ENANTHATE
     Dosage: 100 MG, EVERY FRIDAY
     Route: 030
     Dates: start: 20170804
  18. NAPROXEN SODIUM [Concomitant]
     Active Substance: NAPROXEN SODIUM
     Indication: Arthralgia
     Dosage: 500 MG, 2X/DAY
     Dates: start: 202006
  19. NAPROXEN SODIUM [Concomitant]
     Active Substance: NAPROXEN SODIUM
     Indication: Myalgia
  20. SANDOSTATIN LAR DEPOT [Concomitant]
     Active Substance: OCTREOTIDE ACETATE
     Dosage: 20 MG, MONTHLY
     Route: 030
     Dates: start: 2000, end: 2019
  21. SANDOSTATIN LAR DEPOT [Concomitant]
     Active Substance: OCTREOTIDE ACETATE
     Dosage: UNK
     Route: 065
     Dates: start: 201909
  22. SANDOSTATIN [Concomitant]
     Active Substance: OCTREOTIDE ACETATE
     Dosage: 20 MG, EVERY 4WEEKS/30 DAYS
     Route: 030
     Dates: start: 2001
  23. SANDOSTATIN [Concomitant]
     Active Substance: OCTREOTIDE ACETATE
     Dosage: UNK
     Dates: start: 201909
  24. SYNTHROID [Concomitant]
     Active Substance: LEVOTHYROXINE SODIUM
     Dosage: UNK
     Dates: start: 201907
  25. TYLENOL EXTRA STRENGTH [Concomitant]
     Active Substance: ACETAMINOPHEN
     Dosage: 600 MG, AS NEEDED (SEVERAL TABLETS ALMOST DAILY)
     Route: 048
  26. TYLENOL EXTRA STRENGTH [Concomitant]
     Active Substance: ACETAMINOPHEN
     Dosage: 8-10 DF, DAILY
     Route: 048
     Dates: start: 201707
  27. TYLENOL EXTRA STRENGTH [Concomitant]
     Active Substance: ACETAMINOPHEN
     Dosage: 2-4 DF, DAILY
     Route: 048
  28. TYLENOL EXTRA STRENGTH [Concomitant]
     Active Substance: ACETAMINOPHEN
     Dosage: 650 MG, 2 TO 10 TIMES PER DAY AS NEEDED (PRN)
     Route: 048
  29. VOLTAREN [Concomitant]
     Active Substance: DICLOFENAC SODIUM
     Indication: Arthralgia
     Dosage: UNK
  30. VOLTAREN [Concomitant]
     Active Substance: DICLOFENAC SODIUM
     Indication: Bone pain
  31. XARELTO [Concomitant]
     Active Substance: RIVAROXABAN
     Dosage: UNK
     Dates: start: 201606

REACTIONS (12)
  - Pulmonary embolism [Recovered/Resolved]
  - Drug ineffective [Not Recovered/Not Resolved]
  - Intentional product misuse [Unknown]
  - Injection site bruising [Unknown]
  - Off label use [Unknown]
  - Therapeutic product effect variable [Unknown]
  - Needle issue [Unknown]
  - Off label use [Unknown]
  - Bone pain [Not Recovered/Not Resolved]
  - Sitting disability [Unknown]
  - Pain [Unknown]
  - Fatigue [Not Recovered/Not Resolved]

NARRATIVE: CASE EVENT DATE: 20150616
